FAERS Safety Report 4288568-X (Version None)
Quarter: 2004Q1

REPORT INFORMATION
  Report Type: 
  Country: None (occurrence: None)
  Receive Date: 20040204
  Receipt Date: 20040123
  Transmission Date: 20041129
  Serious: Yes (Other)
  Sender: FDA-Public Use
  Company Number: 200311285JP

PATIENT
  Age: 56 Year
  Sex: Female
  Weight: 47 kg

DRUGS (13)
  1. ARAVA [Suspect]
     Indication: RHEUMATOID ARTHRITIS
     Dosage: 100 MG QD PO
     Route: 048
     Dates: end: 20031010
  2. ARAVA [Suspect]
     Indication: RHEUMATOID ARTHRITIS
     Dosage: 10 MG QD PO
     Route: 048
     Dates: start: 20031011, end: 20031026
  3. PREDONIN [Concomitant]
  4. VOLTAREN [Concomitant]
  5. MUCOSTA [Concomitant]
  6. BONALON [Concomitant]
  7. KENACORT [Concomitant]
  8. KENACORT [Concomitant]
  9. SUVENYL DISPO [Concomitant]
  10. SUVENYL DISPO [Concomitant]
  11. RHEUMATREX [Concomitant]
  12. PROCAINE HYDROCHLORIDE INJ [Concomitant]
  13. PROCAINE HYDROCHLORIDE INJ [Concomitant]

REACTIONS (5)
  - CONDITION AGGRAVATED [None]
  - COUGH [None]
  - INTERSTITIAL LUNG DISEASE [None]
  - SCIATICA [None]
  - VITAL CAPACITY DECREASED [None]
